FAERS Safety Report 5105507-X (Version None)
Quarter: 2006Q3

REPORT INFORMATION
  Report Type: 
  Country: None (occurrence: None)
  Receive Date: 20060915
  Receipt Date: 20060901
  Transmission Date: 20061208
  Serious: Yes (Hospitalization)
  Sender: FDA-Public Use
  Company Number: JP-BRISTOL-MYERS SQUIBB COMPANY-13504378

PATIENT
  Age: 67 Year
  Sex: Female

DRUGS (9)
  1. CYCLOPHOSPHAMIDE [Suspect]
     Indication: CHEMOTHERAPY
     Route: 041
     Dates: start: 20060511, end: 20060511
  2. FARMORUBICIN [Suspect]
     Indication: CHEMOTHERAPY
     Route: 041
     Dates: start: 20060511, end: 20060511
  3. ISOTONIC SODIUM CHLORIDE [Concomitant]
     Dates: start: 20060511, end: 20060511
  4. ZOFRAN [Concomitant]
     Dates: start: 20060511, end: 20060511
  5. DECADRON [Concomitant]
     Dates: start: 20060511, end: 20060511
  6. SOLDEM 3A [Concomitant]
     Dates: start: 20060511, end: 20060511
  7. TANATRIL [Concomitant]
  8. VOGLIBOSE [Concomitant]
  9. PRIMPERAN TAB [Concomitant]
     Dates: start: 20060511, end: 20060511

REACTIONS (1)
  - DUODENAL ULCER [None]
